FAERS Safety Report 7159417-7 (Version None)
Quarter: 2010Q4

REPORT INFORMATION
  Report Type: 
  Country: None (occurrence: None)
  Receive Date: 20101214
  Receipt Date: 20100901
  Transmission Date: 20110411
  Serious: No
  Sender: FDA-Public Use
  Company Number: US-ASTRAZENECA-2010SE41305

PATIENT
  Age: 69 Year
  Sex: Female

DRUGS (5)
  1. CRESTOR [Suspect]
     Indication: BLOOD CHOLESTEROL INCREASED
     Route: 048
  2. SYNTHROID [Concomitant]
  3. CHLORTRON [Concomitant]
  4. VERAPAMIL [Concomitant]
  5. DIAZIDE [Concomitant]

REACTIONS (2)
  - EYE PRURITUS [None]
  - EYELID OEDEMA [None]
